FAERS Safety Report 7101707-8 (Version None)
Quarter: 2010Q4

REPORT INFORMATION
  Report Type: 
  Country: None (occurrence: None)
  Receive Date: 20101115
  Receipt Date: 20101108
  Transmission Date: 20110411
  Serious: Yes (Life-Threatening)
  Sender: FDA-Public Use
  Company Number: RU-NOVOPROD-318225

PATIENT

DRUGS (2)
  1. INSULIN DETEMIR FLEXPEN [Suspect]
     Indication: TYPE 2 DIABETES MELLITUS
  2. NOVORAPID FLEXPEN [Suspect]
     Indication: TYPE 2 DIABETES MELLITUS

REACTIONS (1)
  - PANCREATIC CARCINOMA METASTATIC [None]
